FAERS Safety Report 23795873 (Version 1)
Quarter: 2024Q2

REPORT INFORMATION
  Report Type: Spontaneous
  Country: US (occurrence: US)
  Receive Date: 20240429
  Receipt Date: 20240429
  Transmission Date: 20240716
  Serious: Yes (Other)
  Sender: FDA-Public Use
  Company Number: US-002147023-NVSC2024US087039

PATIENT

DRUGS (1)
  1. LEQVIO [Suspect]
     Active Substance: INCLISIRAN SODIUM
     Indication: Product used for unknown indication
     Dosage: 284 MG
     Route: 065

REACTIONS (5)
  - Drug ineffective [Unknown]
  - Hepatic cirrhosis [Unknown]
  - Low density lipoprotein increased [Unknown]
  - Total cholesterol/HDL ratio abnormal [Unknown]
  - Blood triglycerides abnormal [Unknown]
